FAERS Safety Report 18331446 (Version 2)
Quarter: 2020Q4

REPORT INFORMATION
  Report Type: Report from Study
  Country: GB (occurrence: GB)
  Receive Date: 20200930
  Receipt Date: 20201001
  Transmission Date: 20210113
  Serious: Yes (Other)
  Sender: FDA-Public Use
  Company Number: GB-JNJFOC-20200937757

PATIENT
  Sex: Male

DRUGS (14)
  1. ALFACALCIDOL [Concomitant]
     Active Substance: ALFACALCIDOL
  2. OMEPRAZOLE. [Concomitant]
     Active Substance: OMEPRAZOLE
  3. STELARA [Suspect]
     Active Substance: USTEKINUMAB
     Indication: CROHN^S DISEASE
     Route: 058
     Dates: start: 20180523
  4. MIRABEGRON [Concomitant]
     Active Substance: MIRABEGRON
  5. METOCLOPRAMIDE. [Concomitant]
     Active Substance: METOCLOPRAMIDE
  6. HYDROXOCOBALAMIN [Concomitant]
     Active Substance: HYDROXOCOBALAMIN
  7. MATRIFEN [Concomitant]
     Active Substance: FENTANYL
  8. COLESEVELAM [Concomitant]
     Active Substance: COLESEVELAM
  9. PARACETAMOL [Concomitant]
     Active Substance: ACETAMINOPHEN
  10. STELARA [Suspect]
     Active Substance: USTEKINUMAB
  11. AMLODIPINE [Concomitant]
     Active Substance: AMLODIPINE BESYLATE
  12. FOLIC ACID. [Concomitant]
     Active Substance: FOLIC ACID
  13. HYOSCINE BUTYLBROMIDE [Concomitant]
     Active Substance: BUTYLSCOPOLAMINE BROMIDE
  14. SODIUM BICARBONATE. [Concomitant]
     Active Substance: SODIUM BICARBONATE

REACTIONS (4)
  - Weight decreased [Unknown]
  - Arteriovenous fistula occlusion [Unknown]
  - Nephrectomy [Unknown]
  - Post procedural infection [Unknown]
